FAERS Safety Report 15111771 (Version 1)
Quarter: 2018Q3

REPORT INFORMATION
  Report Type: Spontaneous
  Country: FR (occurrence: FR)
  Receive Date: 20180705
  Receipt Date: 20180705
  Transmission Date: 20181010
  Serious: Yes (Other)
  Sender: FDA-Public Use
  Company Number: FR-JNJFOC-20180702779

PATIENT
  Sex: Female

DRUGS (21)
  1. ZOCOR [Concomitant]
     Active Substance: SIMVASTATIN
     Route: 065
  2. NASACORT [Concomitant]
     Active Substance: TRIAMCINOLONE ACETONIDE
     Route: 065
  3. IPRATROPIUM [Concomitant]
     Active Substance: IPRATROPIUM
     Route: 065
  4. DAFALGAN [Concomitant]
     Active Substance: ACETAMINOPHEN
     Route: 065
  5. ECONAZOLE [Concomitant]
     Active Substance: ECONAZOLE
     Route: 065
  6. XARELTO [Suspect]
     Active Substance: RIVAROXABAN
     Indication: THROMBOSIS
     Route: 048
     Dates: start: 20180517
  7. EDUCTYL [Concomitant]
     Active Substance: POTASSIUM BITARTRATE\SODIUM BICARBONATE
     Route: 065
  8. XARELTO [Suspect]
     Active Substance: RIVAROXABAN
     Indication: CEREBROVASCULAR ACCIDENT
     Route: 048
     Dates: start: 20180517
  9. SPIRIVA [Concomitant]
     Active Substance: TIOTROPIUM BROMIDE MONOHYDRATE
     Route: 065
  10. TERBUTALINE [Concomitant]
     Active Substance: TERBUTALINE
     Route: 065
  11. TANGANIL [Concomitant]
     Active Substance: ACETYLLEUCINE
     Route: 065
  12. DEXERYL (GLYCEROL AND WHITE SOFT PARAFFIN AND LIQUID PARAFFIN) [Concomitant]
     Active Substance: GLYCERIN\MINERAL OIL\PETROLATUM
     Route: 065
  13. TELMISARTAN. [Concomitant]
     Active Substance: TELMISARTAN
     Route: 065
  14. MONTELUKAST [Concomitant]
     Active Substance: MONTELUKAST SODIUM
     Route: 065
  15. NOVORAPID [Concomitant]
     Active Substance: INSULIN ASPART
     Route: 065
  16. XYZALL [Concomitant]
     Active Substance: LEVOCETIRIZINE DIHYDROCHLORIDE
     Route: 065
  17. VERAPAMIL [Concomitant]
     Active Substance: VERAPAMIL HYDROCHLORIDE
     Route: 065
  18. SERETIDE [Concomitant]
     Active Substance: FLUTICASONE PROPIONATE\SALMETEROL XINAFOATE
     Route: 065
  19. VENTOLINE [Concomitant]
     Active Substance: ALBUTEROL
     Route: 065
  20. PANTOPRAZOLE [Concomitant]
     Active Substance: PANTOPRAZOLE
     Route: 065
  21. LACRIFLUID [Concomitant]
     Active Substance: CARBOMER
     Route: 065

REACTIONS (2)
  - Blood glucose increased [Unknown]
  - Blood glucose increased [Recovered/Resolved]
